FAERS Safety Report 7853516-X (Version None)
Quarter: 2011Q4

REPORT INFORMATION
  Report Type: 
  Country: None (occurrence: None)
  Receive Date: 20111026
  Receipt Date: 20111019
  Transmission Date: 20120403
  Serious: Yes (Hospitalization)
  Sender: FDA-Public Use
  Company Number: FI-NOVOPROD-333924

PATIENT

DRUGS (6)
  1. METFOREM [Concomitant]
     Dosage: 2 G, QD
  2. FURESIS [Concomitant]
     Dosage: 40 MG, QD
  3. LIRAGLUTIDE FLEXPEN [Suspect]
     Dosage: 0.6 MG, QD
     Route: 058
     Dates: start: 20110710, end: 20110818
  4. BISOPROLOL FUMARATE [Concomitant]
     Dosage: 1.5 + 1
  5. WARFARIN SODIUM [Concomitant]
  6. COVERSYL NOVUM [Concomitant]
     Dosage: 5 MG, QD

REACTIONS (1)
  - PANCREATITIS [None]
